FAERS Safety Report 5425859-0 (Version None)
Quarter: 2007Q3

REPORT INFORMATION
  Report Type: 
  Country: None (occurrence: None)
  Receive Date: 20070823
  Receipt Date: 20070817
  Transmission Date: 20080115
  Serious: Yes (Death)
  Sender: FDA-Public Use
  Company Number: 236922K07USA

PATIENT
  Age: 52 Year
  Sex: Female

DRUGS (9)
  1. REBIF [Suspect]
     Indication: MULTIPLE SCLEROSIS
     Dosage: 44 MCG, 3 IN 1 WEEKS, SUBCUTANEOUS
     Route: 058
     Dates: start: 20050401, end: 20060201
  2. CLONAZEPAM [Concomitant]
  3. LISINOPRIL [Concomitant]
  4. LEVOXYL [Concomitant]
  5. OXYCODONE HCL [Concomitant]
  6. MULTIVITAMIN (MULTIVITAMIN) [Concomitant]
  7. VARIOUS HERBAL MEDICATIONS (ALL OTHER THERAPEUTIC PRODUCTS) [Concomitant]
  8. DILAUDID PUMP (HYDROMORPHONE HYDROCHLORIDE) [Concomitant]
  9. BACLOFEN PUMP (BACLOFEN) [Concomitant]

REACTIONS (2)
  - COMPLETED SUICIDE [None]
  - MULTIPLE SCLEROSIS [None]
